FAERS Safety Report 21452531 (Version 1)
Quarter: 2022Q4

REPORT INFORMATION
  Report Type: Spontaneous
  Country: FI (occurrence: None)
  Receive Date: 20221013
  Receipt Date: 20221013
  Transmission Date: 20230113
  Serious: Yes (Other)
  Sender: FDA-Public Use
  Company Number: FI-ROCHE-3191479

PATIENT
  Age: 42 Year
  Sex: Male

DRUGS (1)
  1. OCREVUS [Suspect]
     Active Substance: OCRELIZUMAB
     Indication: Multiple sclerosis
     Route: 065
     Dates: start: 20220928

REACTIONS (10)
  - Throat irritation [Recovered/Resolved]
  - Malaise [Recovered/Resolved]
  - Burning sensation [Recovered/Resolved]
  - Palpitations [Recovered/Resolved]
  - Wheezing [Recovered/Resolved]
  - Blood pressure increased [Recovered/Resolved]
  - Anaphylactic reaction [Recovered/Resolved]
  - Paraesthesia oral [Recovered/Resolved]
  - Heart rate increased [Recovered/Resolved]
  - Dyspnoea [Recovered/Resolved]

NARRATIVE: CASE EVENT DATE: 20220928
